FAERS Safety Report 7156913-3 (Version None)
Quarter: 2010Q4

REPORT INFORMATION
  Report Type: 
  Country: None (occurrence: None)
  Receive Date: 20101214
  Receipt Date: 20101202
  Transmission Date: 20110411
  Serious: Yes (Hospitalization)
  Sender: FDA-Public Use
  Company Number: PHHY2010JP82463

PATIENT
  Age: 74 Year
  Sex: Female

DRUGS (8)
  1. RASILEZ [Suspect]
     Indication: HYPERTENSION
     Dosage: 150 MG, QD
     Route: 048
     Dates: start: 20101115, end: 20101127
  2. OLMETEC [Suspect]
     Dosage: 40 MG
     Route: 048
     Dates: end: 20101127
  3. CALBLOCK [Concomitant]
     Dosage: 16 MG
  4. CONIEL [Concomitant]
     Dosage: 16 MG
  5. FERROUS CITRATE [Concomitant]
     Dosage: 50 MG
  6. LASIX [Concomitant]
     Dosage: 20 MG
  7. LIVALO [Concomitant]
     Dosage: 2 MG
  8. KALLIKREIN [Concomitant]
     Dosage: 30 IU

REACTIONS (3)
  - CARDIAC ARREST [None]
  - CARDIAC FAILURE [None]
  - HYPERKALAEMIA [None]
